FAERS Safety Report 5268791-8 (Version None)
Quarter: 2007Q1

REPORT INFORMATION
  Report Type: 
  Country: None (occurrence: None)
  Receive Date: 20061213
  Receipt Date: 20051201
  Transmission Date: 20070707
  Serious: Yes (Other)
  Sender: FDA-Public Use
  Company Number: 2004UW01904

PATIENT
  Age: 71 Year
  Sex: Female
  Weight: 74.389 kg

DRUGS (3)
  1. IRESSA [Suspect]
     Indication: NON-SMALL CELL LUNG CANCER
     Dosage: 250 MG PO
     Route: 048
     Dates: start: 20030901
  2. CLONAZEPAM [Concomitant]
  3. ASPIRIN [Concomitant]

REACTIONS (8)
  - ACNE [None]
  - BLISTER [None]
  - DIARRHOEA [None]
  - DYSGEUSIA [None]
  - GASTROOESOPHAGEAL REFLUX DISEASE [None]
  - MOUTH ULCERATION [None]
  - RASH [None]
  - RASH MACULAR [None]
